FAERS Safety Report 11410593 (Version 3)
Quarter: 2015Q4

REPORT INFORMATION
  Report Type: Spontaneous
  Country: US (occurrence: US)
  Receive Date: 20150824
  Receipt Date: 20151105
  Transmission Date: 20160304
  Serious: No
  Sender: FDA-Public Use
  Company Number: US-PFIZER INC-2015274574

PATIENT
  Age: 68 Year

DRUGS (1)
  1. ALTACE [Suspect]
     Active Substance: RAMIPRIL
     Dosage: UNK

REACTIONS (1)
  - Drug hypersensitivity [Unknown]
